FAERS Safety Report 20546841 (Version 2)
Quarter: 2022Q1

REPORT INFORMATION
  Report Type: Spontaneous
  Country: FR (occurrence: FR)
  Receive Date: 20220303
  Receipt Date: 20220324
  Transmission Date: 20220423
  Serious: Yes (Hospitalization, Other)
  Sender: FDA-Public Use
  Company Number: None

PATIENT
  Age: 75 Year
  Sex: Female
  Weight: 71 kg

DRUGS (9)
  1. COMIRNATY [Suspect]
     Active Substance: TOZINAMERAN
     Indication: COVID-19 immunisation
     Dosage: DOSE 3 (BOOSTER), SINGLE
     Route: 030
     Dates: start: 20211119, end: 20211119
  2. COMIRNATY [Suspect]
     Active Substance: TOZINAMERAN
     Dosage: DOSE 2, SINGLE
     Route: 030
     Dates: start: 20210421, end: 20210421
  3. COMIRNATY [Suspect]
     Active Substance: TOZINAMERAN
     Dosage: DOSE 1, SINGLE
     Route: 030
     Dates: start: 20210324, end: 20210324
  4. METHOTREXATE SODIUM [Suspect]
     Active Substance: METHOTREXATE SODIUM
     Indication: Polymyalgia rheumatica
     Dosage: 15 MG, WEEKLY (EVERY WEDNESDAY)
     Route: 048
     Dates: end: 20220118
  5. PREDNISONE [Suspect]
     Active Substance: PREDNISONE
     Indication: Polymyalgia rheumatica
     Dosage: 70 MG, 1X/DAY
     Route: 048
     Dates: start: 20211224
  6. PREDNISONE [Suspect]
     Active Substance: PREDNISONE
     Dosage: UNK, DAILY (40, UNIT UNKNOWN)
  7. PREDNISONE [Suspect]
     Active Substance: PREDNISONE
     Dosage: 15 MG, DAILY
  8. PANTOPRAZOLE [Concomitant]
     Active Substance: PANTOPRAZOLE
     Dosage: 20 MG
  9. INNOVAIR [Concomitant]
     Active Substance: BECLOMETHASONE DIPROPIONATE\FORMOTEROL
     Dosage: UNK, DAILY (200, UNIT UNKNOWN)

REACTIONS (5)
  - Vaccination failure [Recovered/Resolved]
  - COVID-19 [Recovered/Resolved]
  - Acute respiratory distress syndrome [Unknown]
  - Atrial fibrillation [Unknown]
  - Product use in unapproved indication [Unknown]

NARRATIVE: CASE EVENT DATE: 20220101
